FAERS Safety Report 5490969-9 (Version None)
Quarter: 2007Q4

REPORT INFORMATION
  Report Type: 
  Country: None (occurrence: None)
  Receive Date: 20071019
  Receipt Date: 20071015
  Transmission Date: 20080405
  Serious: Yes (Other)
  Sender: FDA-Public Use
  Company Number: US-BRISTOL-MYERS SQUIBB COMPANY-13941638

PATIENT
  Age: 24 Year
  Sex: Male

DRUGS (8)
  1. REYATAZ [Suspect]
     Route: 048
  2. VIDEX [Suspect]
  3. ETIBI [Suspect]
  4. LAMIVUDINE [Suspect]
  5. KALETRA [Suspect]
  6. VIREAD [Suspect]
  7. ZITHROMAX [Suspect]
  8. BACTRIM [Suspect]

REACTIONS (7)
  - ABDOMINAL PAIN [None]
  - BACTERIAL INFECTION [None]
  - GASTRITIS [None]
  - HEPATOMEGALY [None]
  - ILEUS PARALYTIC [None]
  - LYMPHADENOPATHY [None]
  - WEIGHT DECREASED [None]
